FAERS Safety Report 10954698 (Version 1)
Quarter: 2015Q1

REPORT INFORMATION
  Report Type: Spontaneous
  Country: US (occurrence: US)
  Receive Date: 20150325
  Receipt Date: 20150325
  Transmission Date: 20150721
  Serious: Yes (Other)
  Sender: FDA-Public Use
  Company Number: US-ABBVIE-15P-163-1364355-00

PATIENT
  Sex: Male

DRUGS (2)
  1. TESTIM [Concomitant]
     Active Substance: TESTOSTERONE
     Indication: PRODUCT USED FOR UNKNOWN INDICATION
     Route: 065
  2. ANDROGEL [Suspect]
     Active Substance: TESTOSTERONE
     Indication: PRODUCT USED FOR UNKNOWN INDICATION
     Route: 061
     Dates: start: 200401, end: 201304

REACTIONS (5)
  - Physical disability [Unknown]
  - Pain [Unknown]
  - Deep vein thrombosis [Unknown]
  - Cerebrovascular accident [Unknown]
  - Emotional disorder [Unknown]
